FAERS Safety Report 10466093 (Version 1)
Quarter: 2014Q3

REPORT INFORMATION
  Report Type: Spontaneous
  Country: CN (occurrence: CN)
  Receive Date: 20140922
  Receipt Date: 20140922
  Transmission Date: 20150326
  Serious: Yes (Death)
  Sender: FDA-Public Use
  Company Number: CN-ASTRAZENECA-2014SE68292

PATIENT
  Age: 74 Year
  Sex: Male

DRUGS (9)
  1. CLOPIDOGREL [Concomitant]
     Active Substance: CLOPIDOGREL BISULFATE
     Indication: PLATELET AGGREGATION INHIBITION
     Route: 048
  2. OXIRACETAM [Concomitant]
     Active Substance: OXIRACETAM
     Indication: CEREBRAL INFARCTION
  3. SODIUM OZAGREL [Concomitant]
     Indication: PLATELET AGGREGATION INHIBITION
  4. ROSUVASTATIN CALCIUM [Suspect]
     Active Substance: ROSUVASTATIN CALCIUM
     Indication: CEREBRAL INFARCTION
     Route: 048
     Dates: end: 20130109
  5. EDARAVONE [Concomitant]
     Active Substance: EDARAVONE
  6. AZITHROMYCIN [Suspect]
     Active Substance: AZITHROMYCIN ANHYDROUS
     Indication: LUNG INFECTION
  7. IRBESARTAN. [Concomitant]
     Active Substance: IRBESARTAN
     Route: 048
  8. XINGNAOJING [Concomitant]
     Indication: CEREBRAL INFARCTION
  9. PIPERACILLIN SODIUM/TAZOBACTAM [Concomitant]
     Active Substance: PIPERACILLIN SODIUM\TAZOBACTAM SODIUM
     Indication: LUNG INFECTION

REACTIONS (4)
  - Rhabdomyolysis [Fatal]
  - Renal impairment [Fatal]
  - Liver injury [Fatal]
  - Cardiomyopathy [Fatal]

NARRATIVE: CASE EVENT DATE: 20130109
